FAERS Safety Report 5191011-X (Version None)
Quarter: 2006Q4

REPORT INFORMATION
  Report Type: 
  Country: None (occurrence: None)
  Receive Date: 20061218
  Receipt Date: 20061204
  Transmission Date: 20070319
  Serious: Yes (Hospitalization)
  Sender: FDA-Public Use
  Company Number: GXKR2006GB07752

PATIENT
  Age: 64 Year
  Sex: Female
  Weight: 67 kg

DRUGS (6)
  1. DOXYCYCLINE [Suspect]
     Indication: BLEPHARITIS
     Dosage: SEE IMAGE
     Dates: end: 20061106
  2. DOXYCYCLINE [Suspect]
     Indication: BLEPHARITIS
     Dosage: SEE IMAGE
  3. ALENDRONATE SODIUM [Concomitant]
  4. CODEINE SUL TAB [Concomitant]
  5. ACETAMINOPHEN [Concomitant]
  6. CYANOCOBALAMIN [Concomitant]

REACTIONS (7)
  - ALANINE AMINOTRANSFERASE INCREASED [None]
  - BLOOD BILIRUBIN INCREASED [None]
  - GAMMA-GLUTAMYLTRANSFERASE INCREASED [None]
  - JAUNDICE [None]
  - MALAISE [None]
  - NAUSEA [None]
  - VOMITING [None]
